FAERS Safety Report 8950640 (Version 1)
Quarter: 2012Q4

REPORT INFORMATION
  Report Type: 
  Country: AT (occurrence: AT)
  Receive Date: 20121206
  Receipt Date: 20121206
  Transmission Date: 20130627
  Serious: Yes (Other)
  Sender: FDA-Public Use
  Company Number: AT-MYLANLABS-2012S1024441

PATIENT
  Age: 54 Year
  Sex: Female
  Weight: 77 kg

DRUGS (2)
  1. SIMVASTATIN [Suspect]
     Indication: HYPERLIPIDAEMIA
     Dates: start: 201205, end: 201210
  2. SIMVASTATIN [Suspect]
     Indication: HYPERLIPIDAEMIA
     Dates: end: 201205

REACTIONS (2)
  - Arthralgia [Recovered/Resolved]
  - Movement disorder [Recovered/Resolved]
